FAERS Safety Report 4585382-2 (Version None)
Quarter: 2005Q1

REPORT INFORMATION
  Report Type: 
  Country: None (occurrence: None)
  Receive Date: 20050217
  Receipt Date: 20050104
  Transmission Date: 20050727
  Serious: Yes (Life-Threatening, Hospitalization)
  Sender: FDA-Public Use
  Company Number: DE-BRISTOL-MYERS SQUIBB COMPANY-12813127

PATIENT
  Age: 57 Year
  Sex: Female
  Weight: 68 kg

DRUGS (4)
  1. ABILIFY [Suspect]
     Indication: SCHIZOPHRENIA
     Route: 048
     Dates: start: 20041119, end: 20041208
  2. RISPERDAL [Concomitant]
     Indication: PARANOIA
     Route: 048
     Dates: start: 20040901
  3. REMERGIL [Concomitant]
     Indication: DEPRESSIVE SYMPTOM
     Route: 048
     Dates: start: 20040901
  4. TAVOR [Concomitant]
     Indication: ANXIETY
     Route: 048
     Dates: start: 20041028

REACTIONS (7)
  - ALANINE AMINOTRANSFERASE INCREASED [None]
  - ASPARTATE AMINOTRANSFERASE INCREASED [None]
  - BLOOD ALKALINE PHOSPHATASE INCREASED [None]
  - BLOOD AMYLASE INCREASED [None]
  - GAMMA-GLUTAMYLTRANSFERASE INCREASED [None]
  - LIPASE INCREASED [None]
  - REFUSAL OF TREATMENT BY PATIENT [None]
